FAERS Safety Report 9046509 (Version 2)
Quarter: 2013Q1

REPORT INFORMATION
  Report Type: Spontaneous
  Country: JP (occurrence: JP)
  Receive Date: 20130204
  Receipt Date: 20130322
  Transmission Date: 20140127
  Serious: Yes (Life-Threatening, Hospitalization)
  Sender: FDA-Public Use
  Company Number: JP-GE HEALTHCARE MEDICAL DIAGNOSTICS-OMPQ-NO-1301S-0101

PATIENT
  Age: 84 None
  Sex: Male

DRUGS (12)
  1. OMNIPAQUE [Suspect]
     Indication: SHUNT STENOSIS
     Dosage: DOSE NOT REPORTED
     Route: 042
     Dates: start: 20120619, end: 20120619
  2. OMNIPAQUE [Suspect]
     Indication: DIAGNOSTIC PROCEDURE
  3. WARFARIN [Concomitant]
  4. ANCARON [Concomitant]
  5. D-ALFA [Concomitant]
  6. LEVOTHYROXINE NA [Concomitant]
  7. SEDIEL [Concomitant]
  8. ETIZOLAM [Concomitant]
  9. SENNOSIDE [Concomitant]
  10. MYSLEE [Concomitant]
  11. REBAMIPIDE OD [Concomitant]
  12. LAC-B [Concomitant]

REACTIONS (4)
  - Platelet count decreased [Recovered/Resolved]
  - Generalised erythema [Recovering/Resolving]
  - Blood pressure decreased [Recovered/Resolved]
  - Hypersensitivity [Recovering/Resolving]
